FAERS Safety Report 24136262 (Version 3)
Quarter: 2025Q4

REPORT INFORMATION
  Report Type: Spontaneous
  Country: EU (occurrence: EU)
  Receive Date: 20240725
  Receipt Date: 20251016
  Transmission Date: 20260118
  Serious: Yes (Hospitalization, Other)
  Sender: AUROBINDO
  Company Number: EU-EMA-DD-20240715-7482677-084326

PATIENT
  Age: 63 Year
  Sex: Male
  Weight: 65 kg

DRUGS (55)
  1. DIAZEPAM [Suspect]
     Active Substance: DIAZEPAM
     Indication: Restlessness
     Dosage: UNK
     Route: 048
     Dates: start: 19981107, end: 19981107
  2. PANTOPRAZOLE [Suspect]
     Active Substance: PANTOPRAZOLE
     Indication: Gastric ulcer
     Dosage: TAB 1
     Route: 048
     Dates: start: 19981107
  3. URAPIDIL [Suspect]
     Active Substance: URAPIDIL
     Indication: Angina pectoris
     Dosage: AMP 1
     Route: 042
     Dates: start: 19981107, end: 19981107
  4. ASPIRIN [Suspect]
     Active Substance: ASPIRIN
     Indication: Coronary artery disease
     Dosage: 50 MILLIGRAM, ONCE A DAY
     Route: 048
  5. ALLOPURINOL [Suspect]
     Active Substance: ALLOPURINOL
     Indication: Hyperuricaemia
     Dosage: 450 MILLIGRAM
     Route: 048
     Dates: start: 19980925, end: 19981106
  6. AMOXICILLIN [Suspect]
     Active Substance: AMOXICILLIN
     Indication: Bronchitis
     Dosage: UNSPECIFIED
     Route: 048
     Dates: start: 19981107
  7. ATORVASTATIN [Suspect]
     Active Substance: ATORVASTATIN
     Indication: Hypercholesterolaemia
     Dosage: UNK
     Route: 048
     Dates: start: 19981023, end: 19981106
  8. ATORVASTATIN [Suspect]
     Active Substance: ATORVASTATIN
     Dosage: 40 MILLIGRAM
     Route: 048
     Dates: start: 19981023, end: 19981106
  9. FUROSEMIDE [Suspect]
     Active Substance: FUROSEMIDE
     Indication: Oedema
     Dosage: 2 DOSAGE FORM, ONCE A DAY
     Route: 048
     Dates: end: 19981106
  10. NITROGLYCERIN [Suspect]
     Active Substance: NITROGLYCERIN
     Indication: Angina pectoris
     Dosage: UNK
     Route: 042
     Dates: start: 19981107, end: 19981108
  11. NITROGLYCERIN [Suspect]
     Active Substance: NITROGLYCERIN
     Indication: Angina pectoris
     Dosage: UNSPECIFIED
     Route: 048
     Dates: start: 19981107, end: 19981107
  12. NITROGLYCERIN [Suspect]
     Active Substance: NITROGLYCERIN
     Dosage: UNSPECIFIED
     Route: 048
     Dates: start: 19981109
  13. HEPARIN [Suspect]
     Active Substance: HEPARIN SODIUM
     Indication: Thrombosis
     Dosage: 5000 INTERNATIONAL UNIT
     Route: 058
     Dates: end: 19981107
  14. HEPARIN [Suspect]
     Active Substance: HEPARIN SODIUM
     Dosage: 7500 INTERNATIONAL UNIT
     Route: 042
     Dates: start: 19981107, end: 19981109
  15. ACETAMINOPHEN [Suspect]
     Active Substance: ACETAMINOPHEN
     Indication: Pyrexia
     Dosage: UNK
     Route: 054
     Dates: start: 19981108, end: 19981109
  16. ACETAMINOPHEN [Suspect]
     Active Substance: ACETAMINOPHEN
     Dosage: 1000 MILLIGRAM
     Route: 054
     Dates: start: 19981108, end: 19981109
  17. ISOSORBIDE DINITRATE [Suspect]
     Active Substance: ISOSORBIDE DINITRATE
     Indication: Coronary artery disease
     Dosage: 40 MILLIGRAM, ONCE A DAY
     Route: 048
     Dates: start: 19981108
  18. NITROGLYCERIN [Suspect]
     Active Substance: NITROGLYCERIN
     Indication: Angina pectoris
     Dosage: 50 MILLIGRAM
     Route: 042
     Dates: start: 19981107, end: 19981108
  19. NITROGLYCERIN [Suspect]
     Active Substance: NITROGLYCERIN
     Dosage: UNK
     Route: 042
     Dates: start: 19981107, end: 19981108
  20. NITROGLYCERIN [Suspect]
     Active Substance: NITROGLYCERIN
     Dosage: UNK
     Route: 048
     Dates: start: 19981109
  21. HEPARIN [Suspect]
     Active Substance: HEPARIN SODIUM
     Indication: Thrombosis
     Dosage: 5000 INTERNATIONAL UNIT
     Route: 058
     Dates: start: 19981107, end: 19981107
  22. HEPARIN [Suspect]
     Active Substance: HEPARIN SODIUM
     Dosage: 7500 INTERNATIONAL UNIT
     Route: 042
     Dates: end: 19981109
  23. METAMIZOLE SODIUM [Suspect]
     Active Substance: METAMIZOLE SODIUM
     Indication: Pain
     Dosage: DROP 20
     Route: 048
     Dates: start: 19981107, end: 19981107
  24. MOLSIDOMINE [Suspect]
     Active Substance: MOLSIDOMINE
     Indication: Coronary artery disease
     Dosage: 8 MILLIGRAM, ONCE A DAY (TAB 1)
     Route: 048
     Dates: start: 19981106
  25. MOLSIDOMINE [Suspect]
     Active Substance: MOLSIDOMINE
     Dosage: 8 MILLIGRAM, ONCE A DAY (TAB 1)
     Route: 048
  26. METOCLOPRAMIDE [Suspect]
     Active Substance: METOCLOPRAMIDE
     Indication: Illness
     Dosage: AMP 1
     Route: 048
     Dates: end: 19981106
  27. METOCLOPRAMIDE [Suspect]
     Active Substance: METOCLOPRAMIDE
     Dosage: 3 MILLIGRAM
     Route: 042
     Dates: start: 19981107, end: 19981107
  28. ACETYLCYSTEINE [Suspect]
     Active Substance: ACETYLCYSTEINE
     Indication: Cough
     Dosage: DROPS 20
     Route: 048
     Dates: start: 19981109, end: 19981109
  29. ACETYLCYSTEINE [Suspect]
     Active Substance: ACETYLCYSTEINE
     Indication: Mucosal inflammation
     Dosage: UNK ( TAB 1 UNK, QD)
     Route: 048
     Dates: start: 19981108
  30. FUROSEMIDE [Suspect]
     Active Substance: FUROSEMIDE
     Indication: Product used for unknown indication
     Dosage: UNSPECIFIED
     Route: 048
     Dates: start: 19981107
  31. FUROSEMIDE [Suspect]
     Active Substance: FUROSEMIDE
     Indication: Coronary artery insufficiency
     Dosage: UNK
     Route: 042
  32. FUROSEMIDE [Suspect]
     Active Substance: FUROSEMIDE
     Dosage: 40 MILLIGRAM
     Route: 042
     Dates: start: 19981107, end: 19981107
  33. NITROGLYCERIN [Suspect]
     Active Substance: NITROGLYCERIN
     Indication: Angina pectoris
     Dosage: UNSPECIFIED
     Route: 048
     Dates: start: 19981109
  34. NITROGLYCERIN [Suspect]
     Active Substance: NITROGLYCERIN
     Dosage: UNSPECIFIED
     Route: 048
     Dates: start: 19981107, end: 19981107
  35. NITROGLYCERIN [Suspect]
     Active Substance: NITROGLYCERIN
     Dosage: UNK
     Route: 042
     Dates: start: 19981107, end: 19981108
  36. ACETYLCYSTEINE [Suspect]
     Active Substance: ACETYLCYSTEINE
     Indication: Mucosal inflammation
     Dosage: 20 DROP
     Route: 048
     Dates: start: 19981108, end: 19981109
  37. ACETYLCYSTEINE [Suspect]
     Active Substance: ACETYLCYSTEINE
     Indication: Cough
  38. FUROSEMIDE [Suspect]
     Active Substance: FUROSEMIDE
     Indication: Coronary artery insufficiency
     Dosage: UNK
     Route: 042
     Dates: start: 19981107, end: 19981107
  39. FUROSEMIDE [Suspect]
     Active Substance: FUROSEMIDE
     Indication: Oedema
     Dosage: 80 MILLIGRAM, ONCE A DAY
     Route: 048
  40. FUROSEMIDE [Suspect]
     Active Substance: FUROSEMIDE
     Dosage: 80 MILLIGRAM
     Route: 065
     Dates: end: 19981107
  41. INSULIN HUMAN [Suspect]
     Active Substance: INSULIN HUMAN
     Indication: Diabetes mellitus
     Dosage: 70 INTERNATIONAL UNIT
     Route: 042
     Dates: start: 19981107, end: 19981107
  42. MORPHINE [Suspect]
     Active Substance: MORPHINE
     Indication: Pain
     Dosage: 3 MILLIGRAM
     Route: 042
     Dates: start: 19981107, end: 19981107
  43. ASPIRIN LYSINE [Suspect]
     Active Substance: ASPIRIN LYSINE
     Indication: Angina pectoris
     Dosage: 250 MILLIGRAM
     Route: 042
     Dates: start: 19981107, end: 19981107
  44. METOCLOPRAMIDE [Suspect]
     Active Substance: METOCLOPRAMIDE
     Indication: Illness
     Dosage: AMP 1
     Route: 042
     Dates: start: 19981107, end: 19981107
  45. INSULIN NOS [Concomitant]
     Active Substance: INSULIN NOS
     Indication: Diabetes mellitus
     Dosage: UNK
     Route: 058
  46. CARVEDILOL [Concomitant]
     Active Substance: CARVEDILOL
     Indication: Hypertension
     Dosage: UNK
     Route: 048
  47. ISOSORBIDE MONONITRATE [Concomitant]
     Active Substance: ISOSORBIDE MONONITRATE
     Indication: Coronary artery disease
     Dosage: UNK
     Route: 048
     Dates: end: 19981106
  48. AQUAPHOR [Concomitant]
     Active Substance: PETROLATUM
     Indication: Hypertension
     Dosage: UNK
     Route: 048
     Dates: end: 19981106
  49. AQUAPHOR [Concomitant]
     Active Substance: PETROLATUM
     Indication: Product used for unknown indication
     Dosage: UNK
     Route: 048
     Dates: start: 19981108
  50. AQUAPHOR [Concomitant]
     Active Substance: PETROLATUM
     Indication: Hypertension
     Dosage: 40 MILLIGRAM
     Route: 048
     Dates: start: 19981106
  51. AQUAPHOR [Concomitant]
     Active Substance: PETROLATUM
     Dosage: 40 MILLIGRAM, ONCE A DAY
     Route: 048
     Dates: start: 19981108
  52. Ismn basics [Concomitant]
     Indication: Coronary artery disease
     Dosage: 60 MILLIGRAM, ONCE A DAY
     Route: 048
     Dates: start: 19981106
  53. MOLSIDOMINE [Concomitant]
     Active Substance: MOLSIDOMINE
     Indication: Coronary artery disease
     Dosage: UNK
     Route: 048
     Dates: end: 19981106
  54. CARVEDILOL [Concomitant]
     Active Substance: CARVEDILOL
     Indication: Hypertension
     Dosage: 39.5 MILLIGRAM, ONCE A DAY (19.75 MG)
     Route: 048
  55. CARVEDILOL [Concomitant]
     Active Substance: CARVEDILOL
     Dosage: UNK
     Route: 048

REACTIONS (11)
  - Stevens-Johnson syndrome [Recovered/Resolved]
  - Erythema multiforme [Recovered/Resolved]
  - Rash [Unknown]
  - Pyrexia [Unknown]
  - Blood creatinine increased [Unknown]
  - Oral mucosal eruption [Unknown]
  - Blood urea increased [Unknown]
  - Skin disorder [Unknown]
  - Pruritus [Unknown]
  - Leukocytosis [Unknown]
  - Ocular hyperaemia [Unknown]

NARRATIVE: CASE EVENT DATE: 19981108
